FAERS Safety Report 8395003-9 (Version None)
Quarter: 2012Q2

REPORT INFORMATION
  Report Type: 
  Country: None (occurrence: None)
  Receive Date: 20120530
  Receipt Date: 20120524
  Transmission Date: 20120825
  Serious: Yes (Other)
  Sender: FDA-Public Use
  Company Number: US-ELI_LILLY_AND_COMPANY-US201205009045

PATIENT
  Sex: Female

DRUGS (6)
  1. EFFIENT [Suspect]
     Indication: STENT PLACEMENT
     Dosage: 10 MG, UNK
     Dates: start: 20120510, end: 20120517
  2. VITAMIN B-12 [Concomitant]
     Dosage: 1000 MG, UNK
  3. SYNTHROID [Concomitant]
     Dosage: 2 TABLETS, QD ON WEDS + SUN
  4. SYNTHROID [Concomitant]
     Dosage: 3 DF, QD ON MON/TUES/THURS/SAT
  5. VITAMIN D [Concomitant]
     Dosage: 500 DF, MONTHLY (1/M)
  6. ASPIRIN [Concomitant]
     Dosage: 81 MG, UNK

REACTIONS (5)
  - THROMBOSIS [None]
  - FLUID RETENTION [None]
  - DEVICE DISLOCATION [None]
  - DYSPNOEA [None]
  - OEDEMA PERIPHERAL [None]
